FAERS Safety Report 9279592 (Version 1)
Quarter: 2013Q2

REPORT INFORMATION
  Report Type: Spontaneous
  Country: US (occurrence: US)
  Receive Date: 20130509
  Receipt Date: 20130509
  Transmission Date: 20140414
  Serious: Yes (Hospitalization, Other)
  Sender: FDA-Public Use
  Company Number: US-AMGEN-USASP2013032061

PATIENT
  Age: 63 Year
  Sex: Female

DRUGS (3)
  1. ENBREL [Suspect]
     Indication: PSORIATIC ARTHROPATHY
     Dosage: 50 MG, QWK
  2. REMICADE [Suspect]
     Dosage: UNK
  3. SIMPONI [Concomitant]
     Dosage: UNK

REACTIONS (6)
  - Gait disturbance [Recovered/Resolved]
  - Pain [Recovered/Resolved]
  - Joint arthroplasty [Recovered/Resolved]
  - Respiratory failure [Recovered/Resolved]
  - Arthralgia [Not Recovered/Not Resolved]
  - Psoriasis [Not Recovered/Not Resolved]
